FAERS Safety Report 22208245 (Version 2)
Quarter: 2023Q2

REPORT INFORMATION
  Report Type: Spontaneous
  Country: JP (occurrence: JP)
  Receive Date: 20230413
  Receipt Date: 20230428
  Transmission Date: 20230722
  Serious: Yes (Other)
  Sender: FDA-Public Use
  Company Number: JP-AMGEN-JPNSP2023038200

PATIENT
  Sex: Male

DRUGS (3)
  1. BLINCYTO [Suspect]
     Active Substance: BLINATUMOMAB
     Indication: Acute lymphocytic leukaemia
     Dosage: UNK
     Route: 040
     Dates: start: 20230213
  2. DIFLUCAN [Suspect]
     Active Substance: FLUCONAZOLE
     Indication: Product used for unknown indication
     Dosage: UNK
     Route: 065
  3. PREDNISOLONE [Concomitant]
     Active Substance: PREDNISOLONE
     Dosage: UNK

REACTIONS (6)
  - Open angle glaucoma [Not Recovered/Not Resolved]
  - Cytokine release syndrome [Recovered/Resolved]
  - Acute lymphocytic leukaemia [Unknown]
  - Cognitive disorder [Not Recovered/Not Resolved]
  - Eosinophil count increased [Recovered/Resolved]
  - Lacrimal gland enlargement [Not Recovered/Not Resolved]

NARRATIVE: CASE EVENT DATE: 20230214
